FAERS Safety Report 8266576-1 (Version None)
Quarter: 2012Q2

REPORT INFORMATION
  Report Type: 
  Country: None (occurrence: None)
  Receive Date: 20120406
  Receipt Date: 20120321
  Transmission Date: 20120825
  Serious: Yes (Death, Hospitalization)
  Sender: FDA-Public Use
  Company Number: FR-BAXTER-2012BH006979

PATIENT
  Sex: Male

DRUGS (12)
  1. METHOTREXATE [Suspect]
     Indication: DIFFUSE LARGE B-CELL LYMPHOMA
     Route: 042
     Dates: start: 20120204, end: 20120204
  2. LASIX [Concomitant]
     Route: 042
     Dates: start: 20120204
  3. PREDNISOLONE [Concomitant]
     Route: 065
     Dates: start: 20120204
  4. AMOXICILLIN [Concomitant]
     Route: 065
     Dates: end: 20120202
  5. DOXORUBICIN HCL [Suspect]
     Indication: DIFFUSE LARGE B-CELL LYMPHOMA
     Route: 042
     Dates: start: 20120205, end: 20120205
  6. VINCRISTINE SULFATE [Suspect]
     Indication: DIFFUSE LARGE B-CELL LYMPHOMA
     Route: 042
     Dates: start: 20120204, end: 20120204
  7. ROCEPHIN [Concomitant]
     Route: 065
     Dates: start: 20120202
  8. LEUCOVORIN CALCIUM [Concomitant]
     Route: 065
     Dates: start: 20120205
  9. METHOTREXATE [Concomitant]
     Route: 037
     Dates: start: 20120205
  10. CYCLOPHOSPHAMIDE [Suspect]
     Indication: DIFFUSE LARGE B-CELL LYMPHOMA
     Route: 042
     Dates: start: 20120205, end: 20120207
  11. MABTHERA [Suspect]
     Indication: DIFFUSE LARGE B-CELL LYMPHOMA
     Route: 042
     Dates: start: 20120202, end: 20120202
  12. HYDROCORTISONE [Concomitant]
     Route: 037
     Dates: start: 20120205

REACTIONS (3)
  - HEPATITIS FULMINANT [None]
  - TOXIC EPIDERMAL NECROLYSIS [None]
  - MULTI-ORGAN FAILURE [None]
